APPROVED DRUG PRODUCT: NIFEDIPINE
Active Ingredient: NIFEDIPINE
Strength: 20MG
Dosage Form/Route: CAPSULE;ORAL
Application: A072556 | Product #001
Applicant: ACTAVIS ELIZABETH LLC
Approved: Sep 20, 1990 | RLD: No | RS: No | Type: DISCN